FAERS Safety Report 15267731 (Version 1)
Quarter: 2018Q3

REPORT INFORMATION
  Report Type: Spontaneous
  Country: US (occurrence: US)
  Receive Date: 20180724
  Receipt Date: 20180724
  Transmission Date: 20181010
  Serious: No
  Sender: FDA-Public Use
  Company Number: None

PATIENT
  Sex: Female

DRUGS (4)
  1. OCALIVA [Suspect]
     Active Substance: OBETICHOLIC ACID
     Indication: PRIMARY BILIARY CHOLANGITIS
     Route: 048
     Dates: start: 20180706
  2. URSODIOL. [Concomitant]
     Active Substance: URSODIOL
  3. VALSART/HCTZ [Concomitant]
  4. RIFAMPIN. [Concomitant]
     Active Substance: RIFAMPIN

REACTIONS (2)
  - Abdominal distension [None]
  - Flatulence [None]
